FAERS Safety Report 5525891-2 (Version None)
Quarter: 2007Q4

REPORT INFORMATION
  Report Type: 
  Country: None (occurrence: None)
  Receive Date: 20071126
  Receipt Date: 20071115
  Transmission Date: 20080405
  Serious: Yes (Other)
  Sender: FDA-Public Use
  Company Number: US-PFIZER INC-2007096300

PATIENT
  Age: 82 Year
  Sex: Female

DRUGS (2)
  1. XALATAN [Suspect]
  2. XAL-EASE [Suspect]

REACTIONS (2)
  - CATARACT [None]
  - PHARMACEUTICAL PRODUCT COMPLAINT [None]
